FAERS Safety Report 10779362 (Version 1)
Quarter: 2015Q1

REPORT INFORMATION
  Report Type: Spontaneous
  Country: US (occurrence: US)
  Receive Date: 20150210
  Receipt Date: 20150210
  Transmission Date: 20150721
  Serious: Yes (Other)
  Sender: FDA-Public Use
  Company Number: US-BEH-2015048497

PATIENT
  Age: 51 Year
  Sex: Male

DRUGS (1)
  1. BERINERT [Suspect]
     Active Substance: HUMAN C1-ESTERASE INHIBITOR
     Indication: PRODUCT USED FOR UNKNOWN INDICATION
     Route: 058
     Dates: start: 20140130

REACTIONS (3)
  - Unevaluable event [Unknown]
  - Central venous catheter removal [Unknown]
  - Skin discolouration [Unknown]

NARRATIVE: CASE EVENT DATE: 20150128
